FAERS Safety Report 6899812-4 (Version None)
Quarter: 2010Q3

REPORT INFORMATION
  Report Type: 
  Country: None (occurrence: None)
  Receive Date: 20100803
  Receipt Date: 20100719
  Transmission Date: 20110219
  Serious: No
  Sender: FDA-Public Use
  Company Number: US-B.I. PHARMACEUTICALS,INC./RIDGEFIELD-2010-BP-08244PF

PATIENT
  Sex: Male

DRUGS (5)
  1. SPIRIVA [Suspect]
  2. COMBIVENT [Suspect]
  3. PROTONIX [Concomitant]
  4. PROAIR HFA [Concomitant]
  5. CHANTIX [Concomitant]

REACTIONS (1)
  - FALSE POSITIVE INVESTIGATION RESULT [None]
